FAERS Safety Report 8348187-2 (Version None)
Quarter: 2012Q2

REPORT INFORMATION
  Report Type: 
  Country: None (occurrence: None)
  Receive Date: 20120509
  Receipt Date: 20120505
  Transmission Date: 20120825
  Serious: Yes (Hospitalization)
  Sender: FDA-Public Use
  Company Number: US-B.I. PHARMACEUTICALS,INC./RIDGEFIELD-2012-BP-07387BP

PATIENT
  Sex: Female

DRUGS (4)
  1. AMIODARONE HCL [Suspect]
  2. PRADAXA [Suspect]
     Indication: ATRIAL FIBRILLATION
     Dosage: 150 MG
     Route: 048
  3. AMIODARONE HCL [Suspect]
     Dosage: 2.7 G
     Route: 042
  4. ASPIRIN [Concomitant]

REACTIONS (2)
  - ACUTE HEPATIC FAILURE [None]
  - VENTRICULAR ARRHYTHMIA [None]
